FAERS Safety Report 9967606 (Version 1)
Quarter: 2014Q1

REPORT INFORMATION
  Report Type: Report from Study
  Country: US (occurrence: US)
  Receive Date: 20140305
  Receipt Date: 20140305
  Transmission Date: 20141002
  Serious: No
  Sender: FDA-Public Use
  Company Number: US-ABBVIE-13P-163-1139310-00

PATIENT
  Sex: Male

DRUGS (13)
  1. HUMIRA [Suspect]
     Indication: COLITIS ULCERATIVE
     Dates: start: 201305
  2. HUMIRA [Suspect]
     Dates: start: 20130908
  3. PENTASA [Concomitant]
     Indication: COLITIS ULCERATIVE
     Dates: start: 201304
  4. MELOXICAM [Concomitant]
     Indication: ARTHRITIS
     Dates: start: 2011
  5. HYDROCODONE [Concomitant]
     Indication: PAIN
     Dosage: 5/325MG
     Dates: start: 201304
  6. PROPRANOLOL [Concomitant]
     Indication: HYPERTENSION
     Dates: start: 2011
  7. FLOMAX [Concomitant]
     Indication: PROSTATOMEGALY
  8. PREDNISONE [Concomitant]
     Indication: PRODUCT USED FOR UNKNOWN INDICATION
  9. PREDNISONE [Concomitant]
  10. PREDNISONE [Concomitant]
  11. PREDNISONE [Concomitant]
  12. PREDNISONE [Concomitant]
     Dosage: WEANING
  13. PREDNISONE [Concomitant]
     Dates: end: 201308

REACTIONS (9)
  - Frequent bowel movements [Not Recovered/Not Resolved]
  - Rash erythematous [Recovered/Resolved]
  - Rash pruritic [Recovered/Resolved]
  - Rash papular [Recovered/Resolved]
  - Laceration [Recovered/Resolved]
  - Injury [Recovered/Resolved]
  - Drug ineffective [Not Recovered/Not Resolved]
  - Abdominal pain [Not Recovered/Not Resolved]
  - Colitis ulcerative [Not Recovered/Not Resolved]
